FAERS Safety Report 18729897 (Version 4)
Quarter: 2021Q1

REPORT INFORMATION
  Report Type: Spontaneous
  Country: US (occurrence: US)
  Receive Date: 20210112
  Receipt Date: 20210315
  Transmission Date: 20210419
  Serious: Yes (Hospitalization, Other)
  Sender: FDA-Public Use
  Company Number: US-SUNOVION-2021SUN000034

PATIENT
  Age: 52 Year
  Sex: Female

DRUGS (4)
  1. KYNMOBI [Suspect]
     Active Substance: APOMORPHINE HYDROCHLORIDE
     Indication: PARKINSON^S DISEASE
     Dosage: UNK
     Route: 060
     Dates: start: 20200922
  2. ENTACAPONE. [Concomitant]
     Active Substance: ENTACAPONE
  3. AMANTADINE. [Concomitant]
     Active Substance: AMANTADINE HYDROCHLORIDE
  4. RASAGILINE. [Concomitant]
     Active Substance: RASAGILINE

REACTIONS (6)
  - Restless legs syndrome [Unknown]
  - Rotator cuff syndrome [Recovering/Resolving]
  - Arthroscopic surgery [Recovering/Resolving]
  - Dystonia [Unknown]
  - Tendon rupture [Recovering/Resolving]
  - Ulnar nerve palsy [Unknown]

NARRATIVE: CASE EVENT DATE: 20201221
